APPROVED DRUG PRODUCT: PENTOXIFYLLINE
Active Ingredient: PENTOXIFYLLINE
Strength: 400MG
Dosage Form/Route: TABLET, EXTENDED RELEASE;ORAL
Application: A075199 | Product #001
Applicant: ANI PHARMACEUTICALS INC
Approved: Sep 3, 1999 | RLD: No | RS: No | Type: DISCN